FAERS Safety Report 4812371-2 (Version None)
Quarter: 2005Q4

REPORT INFORMATION
  Report Type: 
  Country: None (occurrence: None)
  Receive Date: 20051028
  Receipt Date: 20050119
  Transmission Date: 20060501
  Serious: No
  Sender: FDA-Public Use
  Company Number: US-GLAXOSMITHKLINE-A0541326A

PATIENT
  Age: 69 Year
  Sex: Female

DRUGS (9)
  1. ADVAIR DISKUS 100/50 [Suspect]
     Dosage: 1PUFF TWICE PER DAY
     Route: 055
     Dates: start: 20050101
  2. MICARDIS [Concomitant]
  3. ATENOLOL [Concomitant]
  4. CLONIDINE [Concomitant]
  5. CLONIDINE [Concomitant]
     Route: 061
  6. INDURA [Concomitant]
  7. ZOCOR [Concomitant]
  8. MUCINEX [Concomitant]
  9. UNKNOWN ANTIBIOTIC [Concomitant]

REACTIONS (1)
  - BLOOD PRESSURE INCREASED [None]
